FAERS Safety Report 7099026-1 (Version None)
Quarter: 2010Q4

REPORT INFORMATION
  Report Type: 
  Country: None (occurrence: None)
  Receive Date: 20101112
  Receipt Date: 20100915
  Transmission Date: 20110411
  Serious: Yes (Other)
  Sender: FDA-Public Use
  Company Number: PHHY2010JP61130

PATIENT
  Age: 81 Year
  Sex: Male

DRUGS (6)
  1. DIOVAN [Suspect]
     Indication: HYPERTENSION
     Dosage: 80MG DAILY
     Route: 048
     Dates: start: 20090417
  2. TAKEPRON [Concomitant]
     Dosage: 30MG, UNK
     Route: 048
     Dates: start: 20090417
  3. AMLODIPINE [Concomitant]
     Dosage: 10MG, UNK
     Route: 048
     Dates: start: 20090417
  4. DEPAS [Concomitant]
     Dosage: 2MG, UNK
     Route: 048
     Dates: start: 20090417
  5. DOXAZOSIN MESYLATE [Concomitant]
     Dosage: 2MG, UNK
     Route: 048
     Dates: start: 20090417
  6. ALOSENN [Concomitant]
     Dosage: 0.5MG, UNK
     Route: 048
     Dates: start: 20090417

REACTIONS (3)
  - BLOOD POTASSIUM INCREASED [None]
  - HAEMOGLOBIN DECREASED [None]
  - NEPHROGENIC ANAEMIA [None]
